FAERS Safety Report 14568325 (Version 2)
Quarter: 2018Q1

REPORT INFORMATION
  Report Type: Spontaneous
  Country: AU (occurrence: AU)
  Receive Date: 20180223
  Receipt Date: 20180228
  Transmission Date: 20180509
  Serious: Yes (Other)
  Sender: FDA-Public Use
  Company Number: AU-SEATTLE GENETICS-2018SGN00341

PATIENT
  Age: 75 Year
  Sex: Male

DRUGS (1)
  1. ADCETRIS [Suspect]
     Active Substance: BRENTUXIMAB VEDOTIN
     Indication: PERIPHERAL T-CELL LYMPHOMA UNSPECIFIED
     Dosage: UNK
     Route: 065
     Dates: start: 201601

REACTIONS (8)
  - Mucosal inflammation [Unknown]
  - Off label use [Unknown]
  - Weight decreased [Unknown]
  - Radiculopathy [Unknown]
  - Carpal tunnel syndrome [Unknown]
  - Neutropenic sepsis [Unknown]
  - Hypoaesthesia [Unknown]
  - Diarrhoea [Unknown]
